FAERS Safety Report 4595107-2 (Version None)
Quarter: 2005Q1

REPORT INFORMATION
  Report Type: 
  Country: None (occurrence: None)
  Receive Date: 20050223
  Receipt Date: 20050209
  Transmission Date: 20050727
  Serious: Yes (Other)
  Sender: FDA-Public Use
  Company Number: JP-SHR-03-002988

PATIENT
  Age: 51 Year
  Sex: Female
  Weight: 48 kg

DRUGS (21)
  1. BETAFERON (INTERFERON BETA-1B) INJECTION [Suspect]
     Indication: RELAPSING-REMITTING MULTIPLE SCLEROSIS
     Dosage: SEE  IMAGE
     Route: 058
     Dates: start: 20010409, end: 20010418
  2. BETAFERON (INTERFERON BETA-1B) INJECTION [Suspect]
     Indication: RELAPSING-REMITTING MULTIPLE SCLEROSIS
     Dosage: SEE  IMAGE
     Route: 058
     Dates: start: 20010419, end: 20010430
  3. BETAFERON (INTERFERON BETA-1B) INJECTION [Suspect]
     Indication: RELAPSING-REMITTING MULTIPLE SCLEROSIS
     Dosage: SEE  IMAGE
     Route: 058
     Dates: start: 20010501
  4. TIZANIDINE HCL [Suspect]
     Indication: RELAPSING-REMITTING MULTIPLE SCLEROSIS
     Dosage: 2 MG, 1X/DAY, ORAL
     Route: 048
     Dates: start: 20020524, end: 20021205
  5. TIZANIDINE HCL [Suspect]
     Indication: RELAPSING-REMITTING MULTIPLE SCLEROSIS
     Dosage: 2 MG, 1X/DAY, ORAL
     Route: 048
     Dates: start: 20010616
  6. ZANTAC [Suspect]
     Indication: PROPHYLAXIS AGAINST GASTROINTESTINAL ULCER
     Dosage: 300 MG, 1X/DAY, ORAL
     Route: 048
     Dates: start: 20010307, end: 20021205
  7. MUCOSTA (REBAMIPIDE) TABLET [Suspect]
     Indication: PROPHYLAXIS AGAINST GASTROINTESTINAL ULCER
     Dosage: 300 MG, 1X/DAY, ORAL
     Route: 048
     Dates: start: 20020426, end: 20030205
  8. MUCOSTA (REBAMIPIDE) TABLET [Suspect]
     Indication: PROPHYLAXIS AGAINST GASTROINTESTINAL ULCER
     Dosage: 300 MG, 1X/DAY, ORAL
     Route: 048
     Dates: start: 20010307
  9. TEGRETOL [Suspect]
     Indication: RELAPSING-REMITTING MULTIPLE SCLEROSIS
     Dosage: SEE IMAGE
     Route: 048
     Dates: start: 20020426, end: 20030205
  10. TEGRETOL [Suspect]
     Indication: RELAPSING-REMITTING MULTIPLE SCLEROSIS
     Dosage: SEE IMAGE
     Route: 048
     Dates: start: 20010529
  11. TAKEPRON (LANSOPRAZOLE) [Concomitant]
  12. SOLU-MEDROL [Concomitant]
  13. GLYCEOL (GLYCEROL, FRUCTOSE) [Concomitant]
  14. PREDONINE [Concomitant]
  15. ISONIAZID [Concomitant]
  16. MUCODYNE (CARBOCISTEINE) [Concomitant]
  17. MUCOSOLVAN [Concomitant]
  18. RIMACTANE [Concomitant]
  19. VITAMEDIN (BENFOTIAMINE) [Concomitant]
  20. VOLTAREN [Concomitant]
  21. FAMOTIDINE [Concomitant]

REACTIONS (5)
  - HAEMOLYTIC ANAEMIA [None]
  - LEUKOPENIA [None]
  - NEUTROPENIA [None]
  - RELAPSING-REMITTING MULTIPLE SCLEROSIS [None]
  - THERAPY NON-RESPONDER [None]
